FAERS Safety Report 23315281 (Version 1)
Quarter: 2023Q4

REPORT INFORMATION
  Report Type: Spontaneous
  Country: US (occurrence: None)
  Receive Date: 20231219
  Receipt Date: 20231219
  Transmission Date: 20240110
  Serious: Yes (Life-Threatening, Hospitalization)
  Sender: FDA-Public Use
  Company Number: None

PATIENT
  Age: 56 Year
  Sex: Male
  Weight: 86.9 kg

DRUGS (2)
  1. CAPECITABINE [Suspect]
     Active Substance: CAPECITABINE
     Indication: Adenocarcinoma of colon
     Dosage: FREQUENCY : TWICE A DAY;?
     Route: 048
     Dates: start: 20231102, end: 20231107
  2. OXALIPLATIN [Suspect]
     Active Substance: OXALIPLATIN
     Dates: start: 20231102, end: 20231107

REACTIONS (12)
  - Hypoaesthesia [None]
  - Mucosal inflammation [None]
  - Tinnitus [None]
  - Rash [None]
  - Conjunctivitis [None]
  - Diarrhoea [None]
  - Pyrexia [None]
  - Rash [None]
  - Stevens-Johnson syndrome [None]
  - Dihydropyrimidine dehydrogenase deficiency [None]
  - Drug-disease interaction [None]
  - Toxicity to various agents [None]

NARRATIVE: CASE EVENT DATE: 20231107
